FAERS Safety Report 7288127-0 (Version None)
Quarter: 2011Q1

REPORT INFORMATION
  Report Type: 
  Country: None (occurrence: None)
  Receive Date: 20110211
  Receipt Date: 20110203
  Transmission Date: 20110831
  Serious: Yes (Hospitalization, Disabling, Other)
  Sender: FDA-Public Use
  Company Number: US-JNJFOC-20101204045

PATIENT
  Sex: Female
  Weight: 51.26 kg

DRUGS (2)
  1. LEVAQUIN [Suspect]
     Indication: SINUSITIS
     Route: 048
  2. LEVAQUIN [Suspect]
     Route: 048

REACTIONS (10)
  - DYSPNOEA [None]
  - DYSPHAGIA [None]
  - TONGUE DISORDER [None]
  - SWOLLEN TONGUE [None]
  - UPPER-AIRWAY COUGH SYNDROME [None]
  - THROAT TIGHTNESS [None]
  - DRY MOUTH [None]
  - INSOMNIA [None]
  - LYMPHADENOPATHY [None]
  - SINUSITIS [None]
